FAERS Safety Report 20987025 (Version 1)
Quarter: 2022Q2

REPORT INFORMATION
  Report Type: Spontaneous
  Country: US (occurrence: None)
  Receive Date: 20220618
  Receipt Date: 20220618
  Transmission Date: 20220721
  Serious: Yes (Other)
  Sender: FDA-Public Use
  Company Number: None

PATIENT
  Age: 54 Year
  Sex: Female
  Weight: 59.85 kg

DRUGS (9)
  1. FLUCONAZOLE [Suspect]
     Active Substance: FLUCONAZOLE
     Indication: Vulvovaginal mycotic infection
     Dosage: FREQUENCY : DAILY;?
     Route: 048
     Dates: start: 20210601, end: 20210607
  2. ALEVE [Concomitant]
     Active Substance: NAPROXEN SODIUM
  3. VITAMINS [Concomitant]
     Active Substance: VITAMINS
  4. CALCIUM [Concomitant]
     Active Substance: CALCIUM
  5. MAGNESIUM [Concomitant]
     Active Substance: MAGNESIUM
  6. PROBIOTICS NOS [Concomitant]
     Active Substance: PROBIOTICS NOS
  7. HERBALS [Concomitant]
     Active Substance: HERBALS
  8. CRANBERRY [Concomitant]
     Active Substance: CRANBERRY
  9. ZINC [Concomitant]
     Active Substance: ZINC

REACTIONS (2)
  - Hepatitis [None]
  - Hepatic pain [None]

NARRATIVE: CASE EVENT DATE: 20210601
